FAERS Safety Report 7606137-8 (Version None)
Quarter: 2011Q3

REPORT INFORMATION
  Report Type: 
  Country: None (occurrence: None)
  Receive Date: 20110713
  Receipt Date: 20110630
  Transmission Date: 20111222
  Serious: Yes (Hospitalization)
  Sender: FDA-Public Use
  Company Number: US-DX529-2011DX000033

PATIENT
  Age: 13 Year
  Sex: Female
  Weight: 69 kg

DRUGS (7)
  1. NAPROXEN [Concomitant]
     Indication: PAIN
     Route: 065
  2. LYSTEDA [Concomitant]
     Indication: HEREDITARY ANGIOEDEMA
     Route: 065
     Dates: start: 20110101
  3. GABAPENTIN [Concomitant]
     Indication: HYPOAESTHESIA
     Route: 065
     Dates: start: 20101201
  4. SYNTHROID [Concomitant]
     Indication: THYROID DISORDER
     Route: 065
  5. XOPENEX [Concomitant]
     Indication: ASTHMA
     Route: 055
     Dates: start: 20100101
  6. NEXIUM [Concomitant]
     Indication: ABDOMINAL PAIN UPPER
     Route: 065
     Dates: start: 20110101
  7. KALBITOR [Suspect]
     Indication: HEREDITARY ANGIOEDEMA
     Route: 058
     Dates: start: 20110627, end: 20110627

REACTIONS (2)
  - INCORRECT DOSE ADMINISTERED [None]
  - RASH ERYTHEMATOUS [None]
